FAERS Safety Report 10008030 (Version 3)
Quarter: 2014Q2

REPORT INFORMATION
  Report Type: Report from Study
  Country: KR (occurrence: KR)
  Receive Date: 20140313
  Receipt Date: 20140515
  Transmission Date: 20141212
  Serious: No
  Sender: FDA-Public Use
  Company Number: KR-JNJFOC-20140304550

PATIENT
  Age: 36 Year
  Sex: Female

DRUGS (6)
  1. STELARA [Suspect]
     Indication: PSORIASIS
     Route: 058
     Dates: start: 20130514, end: 20130514
  2. STELARA [Suspect]
     Indication: PSORIASIS
     Route: 058
     Dates: start: 20130419, end: 20130419
  3. PYRIDOXINE [Concomitant]
     Indication: LATENT TUBERCULOSIS
     Route: 048
     Dates: start: 20130405, end: 20131004
  4. YUHANZID [Concomitant]
     Indication: LATENT TUBERCULOSIS
     Route: 048
     Dates: start: 20130405, end: 20131004
  5. PRIMALAN [Concomitant]
     Indication: PSORIASIS
     Route: 048
     Dates: start: 20121024
  6. DAIVOBET [Concomitant]
     Indication: PSORIASIS
     Route: 061
     Dates: start: 20130604

REACTIONS (1)
  - Liver function test abnormal [Recovered/Resolved]
